FAERS Safety Report 8812447 (Version 3)
Quarter: 2015Q2

REPORT INFORMATION
  Report Type: Report from Study
  Country: US (occurrence: US)
  Receive Date: 20120927
  Receipt Date: 20150629
  Transmission Date: 20150821
  Serious: Yes (Death, Other)
  Sender: FDA-Public Use
  Company Number: US-ROCHE-1127655

PATIENT
  Age: 64 Year
  Sex: Male
  Weight: 62.88 kg

DRUGS (21)
  1. IRINOTECAN [Concomitant]
     Active Substance: IRINOTECAN
     Route: 042
  2. DECADRON [Concomitant]
     Active Substance: DEXAMETHASONE
     Route: 042
  3. XELODA [Suspect]
     Active Substance: CAPECITABINE
     Indication: COLON CANCER
     Route: 048
     Dates: start: 200703, end: 20080507
  4. XELODA [Suspect]
     Active Substance: CAPECITABINE
     Route: 048
  5. XELODA [Suspect]
     Active Substance: CAPECITABINE
     Route: 048
  6. ALOXI [Concomitant]
     Active Substance: PALONOSETRON HYDROCHLORIDE
     Route: 042
  7. AVASTIN [Suspect]
     Active Substance: BEVACIZUMAB
     Route: 042
  8. AVASTIN [Suspect]
     Active Substance: BEVACIZUMAB
     Indication: METASTASES TO LUNG
     Route: 042
  9. AVASTIN [Suspect]
     Active Substance: BEVACIZUMAB
     Route: 042
  10. IRINOTECAN [Concomitant]
     Active Substance: IRINOTECAN
     Route: 042
  11. AMOXICILLIN. [Concomitant]
     Active Substance: AMOXICILLIN
     Route: 065
  12. AVASTIN [Suspect]
     Active Substance: BEVACIZUMAB
     Indication: COLON CANCER
     Route: 042
     Dates: start: 20080108
  13. AVASTIN [Suspect]
     Active Substance: BEVACIZUMAB
     Route: 042
  14. XELODA [Suspect]
     Active Substance: CAPECITABINE
     Route: 048
  15. IRINOTECAN [Concomitant]
     Active Substance: IRINOTECAN
     Route: 042
  16. KYTRIL [Concomitant]
     Active Substance: GRANISETRON HYDROCHLORIDE
     Route: 065
  17. BENADRYL [Concomitant]
     Active Substance: DIPHENHYDRAMINE HYDROCHLORIDE
     Route: 065
  18. AVASTIN [Suspect]
     Active Substance: BEVACIZUMAB
     Route: 042
  19. XELODA [Suspect]
     Active Substance: CAPECITABINE
     Indication: METASTASES TO LUNG
     Route: 048
  20. XELODA [Suspect]
     Active Substance: CAPECITABINE
     Route: 048
  21. IRINOTECAN [Concomitant]
     Active Substance: IRINOTECAN
     Route: 042
     Dates: start: 200712

REACTIONS (9)
  - Death [Fatal]
  - Anaemia [Unknown]
  - Therapeutic product ineffective [Unknown]
  - Oral herpes [Unknown]
  - Muscle spasms [Unknown]
  - Disease progression [Unknown]
  - Diarrhoea [Unknown]
  - Skin hypertrophy [Unknown]
  - Musculoskeletal discomfort [Unknown]

NARRATIVE: CASE EVENT DATE: 20090917
